FAERS Safety Report 24952524 (Version 1)
Quarter: 2025Q1

REPORT INFORMATION
  Report Type: Report from Study
  Country: US (occurrence: US)
  Receive Date: 20250210
  Receipt Date: 20250210
  Transmission Date: 20250408
  Serious: Yes (Other)
  Sender: ABBVIE
  Company Number: US-ABBVIE-6124374

PATIENT
  Age: 43 Year
  Sex: Female

DRUGS (1)
  1. SKYRIZI [Suspect]
     Active Substance: RISANKIZUMAB-RZAA
     Indication: Crohn^s disease
     Route: 058
     Dates: start: 20241112

REACTIONS (3)
  - Anorectal operation [Recovering/Resolving]
  - Enterostomy [Recovering/Resolving]
  - Intestinal anastomosis [Recovering/Resolving]

NARRATIVE: CASE EVENT DATE: 20250101
